FAERS Safety Report 17931741 (Version 3)
Quarter: 2020Q3

REPORT INFORMATION
  Report Type: Report from Study
  Country: None (occurrence: US)
  Receive Date: 20200624
  Receipt Date: 20200904
  Transmission Date: 20201103
  Serious: Yes (Hospitalization, Other)
  Sender: FDA-Public Use
  Company Number: US-ABBVIE-20K-163-3230926-00

PATIENT
  Sex: Female
  Weight: 73.55 kg

DRUGS (8)
  1. HUMIRA [Suspect]
     Active Substance: ADALIMUMAB
     Indication: RHEUMATOID ARTHRITIS
     Route: 058
     Dates: end: 2018
  2. LYRICA [Concomitant]
     Active Substance: PREGABALIN
     Indication: PRODUCT USED FOR UNKNOWN INDICATION
  3. HUMIRA [Suspect]
     Active Substance: ADALIMUMAB
     Route: 058
     Dates: start: 2018
  4. HYDROCODONE [Concomitant]
     Active Substance: HYDROCODONE
     Indication: PRODUCT USED FOR UNKNOWN INDICATION
  5. PREDNISONE. [Concomitant]
     Active Substance: PREDNISONE
     Indication: PRODUCT USED FOR UNKNOWN INDICATION
  6. OXYCONTIN [Concomitant]
     Active Substance: OXYCODONE HYDROCHLORIDE
     Indication: PRODUCT USED FOR UNKNOWN INDICATION
  7. HUMIRA [Suspect]
     Active Substance: ADALIMUMAB
     Indication: RHEUMATOID ARTHRITIS
     Route: 058
  8. BACLOFEN. [Concomitant]
     Active Substance: BACLOFEN
     Indication: PRODUCT USED FOR UNKNOWN INDICATION

REACTIONS (27)
  - Dizziness [Not Recovered/Not Resolved]
  - Weight increased [Not Recovered/Not Resolved]
  - Anxiety [Not Recovered/Not Resolved]
  - Injection site pain [Recovered/Resolved]
  - Muscle spasms [Unknown]
  - Arthralgia [Unknown]
  - Oesophageal achalasia [Recovered/Resolved]
  - Vocal cord disorder [Unknown]
  - Joint swelling [Unknown]
  - Fear [Not Recovered/Not Resolved]
  - Insomnia [Not Recovered/Not Resolved]
  - Inflammation [Unknown]
  - Aphonia [Recovered/Resolved]
  - Procedural pain [Not Recovered/Not Resolved]
  - Pain in extremity [Unknown]
  - Vomiting [Recovered/Resolved]
  - Pneumonia aspiration [Recovered/Resolved]
  - Procedural vomiting [Recovered/Resolved]
  - Oesophagitis [Not Recovered/Not Resolved]
  - Insomnia [Unknown]
  - Alopecia [Not Recovered/Not Resolved]
  - Rheumatoid arthritis [Not Recovered/Not Resolved]
  - Oesophageal food impaction [Unknown]
  - Joint swelling [Unknown]
  - Peripheral swelling [Unknown]
  - Musculoskeletal disorder [Unknown]
  - Stress [Not Recovered/Not Resolved]

NARRATIVE: CASE EVENT DATE: 2018
